FAERS Safety Report 23360134 (Version 1)
Quarter: 2024Q1

REPORT INFORMATION
  Report Type: Spontaneous
  Country: GR (occurrence: GR)
  Receive Date: 20240103
  Receipt Date: 20240103
  Transmission Date: 20240410
  Serious: Yes (Other)
  Sender: FDA-Public Use
  Company Number: GR-EMA-DD-20230906-7185937-073305

PATIENT
  Age: 78 Year
  Sex: Male

DRUGS (11)
  1. FEBUXOSTAT [Suspect]
     Active Substance: FEBUXOSTAT
     Indication: Psoriatic arthropathy
     Dosage: 80MG/DAY
     Route: 065
  2. AMLODIPINE BESYLATE\VALSARTAN [Suspect]
     Active Substance: AMLODIPINE BESYLATE\VALSARTAN
     Indication: Psoriatic arthropathy
     Dosage: (5/160/12.5)/DAY
     Route: 065
  3. FOLIC ACID [Suspect]
     Active Substance: FOLIC ACID
     Indication: Psoriatic arthropathy
     Dosage: 5MG/WEEK
     Route: 065
  4. GLUCOPHAGE [Suspect]
     Active Substance: METFORMIN HYDROCHLORIDE
     Indication: Psoriatic arthropathy
     Dosage: 850MG/DAY
     Route: 065
  5. NEBIVOLOL HYDROCHLORIDE [Suspect]
     Active Substance: NEBIVOLOL HYDROCHLORIDE
     Indication: Psoriatic arthropathy
     Dosage: 5MG/DAY
     Route: 065
  6. METHOTREXATE [Suspect]
     Active Substance: METHOTREXATE
     Indication: Psoriatic arthropathy
     Dosage: 10MG/WEEK
     Route: 065
     Dates: start: 2011
  7. RABEPRAZOLE SODIUM [Suspect]
     Active Substance: RABEPRAZOLE SODIUM
     Indication: Psoriatic arthropathy
     Dosage: 20MG/DAY
     Route: 065
  8. SIMVASTATIN [Suspect]
     Active Substance: SIMVASTATIN
     Indication: Psoriatic arthropathy
     Dosage: 20MG/DAY
     Route: 065
  9. ASPIRIN [Suspect]
     Active Substance: ASPIRIN
     Indication: Psoriatic arthropathy
     Dosage: 100MG/DAY
     Route: 065
  10. SIMPONI [Suspect]
     Active Substance: GOLIMUMAB
     Indication: Psoriatic arthropathy
     Dosage: 50MG/MONTH
     Route: 065
     Dates: start: 2021
  11. TOPIRAMATE [Suspect]
     Active Substance: TOPIRAMATE
     Indication: Psoriatic arthropathy
     Dosage: 25MG/DAY
     Route: 065

REACTIONS (2)
  - Mucocutaneous ulceration [Unknown]
  - Epstein-Barr virus associated lymphoproliferative disorder [Recovered/Resolved]
